FAERS Safety Report 20240151 (Version 2)
Quarter: 2022Q1

REPORT INFORMATION
  Report Type: Spontaneous
  Country: JP (occurrence: JP)
  Receive Date: 20211228
  Receipt Date: 20220124
  Transmission Date: 20220423
  Serious: Yes (Hospitalization, Other)
  Sender: FDA-Public Use
  Company Number: JP-PFIZER INC-202101815727

PATIENT
  Age: 45 Year
  Sex: Female

DRUGS (1)
  1. SOLU-CORTEF [Suspect]
     Active Substance: HYDROCORTISONE SODIUM SUCCINATE
     Dosage: 100 MG, 1X/DAY
     Route: 041
     Dates: start: 20211108, end: 20211108

REACTIONS (4)
  - Anaphylactic reaction [Recovered/Resolved with Sequelae]
  - Cough [Recovered/Resolved with Sequelae]
  - Oropharyngeal discomfort [Recovered/Resolved with Sequelae]
  - Throat tightness [Unknown]

NARRATIVE: CASE EVENT DATE: 20211108
